FAERS Safety Report 4926183-2 (Version None)
Quarter: 2006Q1

REPORT INFORMATION
  Report Type: 
  Country: None (occurrence: None)
  Receive Date: 20060224
  Receipt Date: 20060224
  Transmission Date: 20060701
  Serious: Yes (Hospitalization)
  Sender: FDA-Public Use
  Company Number: None

PATIENT
  Sex: Male
  Weight: 71.6683 kg

DRUGS (14)
  1. PARAPLATIN [Suspect]
     Indication: NON-SMALL CELL LUNG CANCER
     Dosage: AUC 6 Q21 DAYS IV
     Route: 042
  2. TAXOTERE [Suspect]
     Indication: NON-SMALL CELL LUNG CANCER
     Dosage: 75 MG/M2 Q21 DAYS  IV
     Route: 042
  3. PROZAC [Concomitant]
  4. CLONOPIN [Concomitant]
  5. ASPIRIN/CARDIAC REGIMEN [Concomitant]
  6. VICODIN [Concomitant]
  7. MARINOL [Concomitant]
  8. COGENTIN [Concomitant]
  9. IBUPROFEN [Concomitant]
  10. ADVAIR DISKUS 100/50 [Concomitant]
  11. ALBUTEROL [Concomitant]
  12. TAGAMET [Concomitant]
  13. AZMACOURT [Concomitant]
  14. COMPAZINE [Concomitant]

REACTIONS (12)
  - ASTHENIA [None]
  - DIZZINESS [None]
  - FALL [None]
  - HICCUPS [None]
  - JOINT INJURY [None]
  - LIMB INJURY [None]
  - ORAL INTAKE REDUCED [None]
  - PAIN [None]
  - RIB FRACTURE [None]
  - SKELETAL INJURY [None]
  - SYNCOPE [None]
  - VOMITING [None]
